FAERS Safety Report 7929154-7 (Version None)
Quarter: 2011Q4

REPORT INFORMATION
  Report Type: 
  Country: None (occurrence: None)
  Receive Date: 20111120
  Receipt Date: 20111107
  Transmission Date: 20120403
  Serious: Yes (Death, Hospitalization, Other)
  Sender: FDA-Public Use
  Company Number: FI-ELI_LILLY_AND_COMPANY-FI201111002112

PATIENT
  Sex: Male

DRUGS (6)
  1. FORTEO [Suspect]
     Indication: OSTEOPOROSIS
     Dosage: 20 UG, QD
     Dates: start: 20101215
  2. ETALPHA [Concomitant]
     Indication: VITAMIN D DEFICIENCY
     Dosage: 0.5 MG, UNK
  3. SOLU-MEDROL [Concomitant]
     Indication: GOUT
     Dosage: 2 MG, BID
  4. TESTOSTERONE [Concomitant]
     Indication: HORMONE REPLACEMENT THERAPY
     Dosage: 0.25 MG, QD
  5. OXYCODONE HCL [Concomitant]
     Indication: PAIN
     Dosage: 10 MG, BID
  6. SANDIMMUNE [Concomitant]
     Indication: TRANSPLANT REJECTION
     Dosage: 125 MG, UNK

REACTIONS (5)
  - GOUT [None]
  - SEPTIC SHOCK [None]
  - DEATH [None]
  - DIVERTICULUM INTESTINAL [None]
  - OEDEMA PERIPHERAL [None]
